FAERS Safety Report 9913249 (Version 1)
Quarter: 2014Q1

REPORT INFORMATION
  Report Type: Spontaneous
  Country: US (occurrence: None)
  Receive Date: 20140218
  Receipt Date: 20140218
  Transmission Date: 20141002
  Serious: Yes (Hospitalization)
  Sender: FDA-Public Use
  Company Number: None

PATIENT
  Age: 58 Year
  Sex: Male
  Weight: 108.86 kg

DRUGS (2)
  1. XARELTO [Suspect]
     Indication: CARDIAC ABLATION
     Route: 048
     Dates: start: 20130815, end: 20130930
  2. ASA [Concomitant]

REACTIONS (1)
  - Epistaxis [None]
